FAERS Safety Report 9051266 (Version 3)
Quarter: 2013Q1

REPORT INFORMATION
  Report Type: Spontaneous
  Country: US (occurrence: US)
  Receive Date: 20130206
  Receipt Date: 20130313
  Transmission Date: 20140127
  Serious: Yes (Life-Threatening, Hospitalization)
  Sender: FDA-Public Use
  Company Number: PHEH2013US002851

PATIENT
  Age: 32 None
  Sex: Female

DRUGS (14)
  1. GILENYA [Suspect]
     Indication: MULTIPLE SCLEROSIS
     Dosage: 0.5 MG, QD
     Route: 048
     Dates: start: 20130107, end: 20130122
  2. GILENYA [Suspect]
     Dosage: 0.5 MG, QD
     Route: 048
  3. METFORMIN [Suspect]
  4. BACLOFEN [Concomitant]
     Dosage: 20 MG, UNK
  5. NEURONTIN [Concomitant]
  6. DIAZEPAM [Concomitant]
  7. PROZAC [Concomitant]
  8. SEROQUEL [Concomitant]
  9. AMLODIPINE [Concomitant]
  10. THYROID THERAPY [Concomitant]
  11. ADDERALL [Concomitant]
  12. LISINOPRIL [Concomitant]
  13. PHENERGAN [Concomitant]
  14. VALIUM [Concomitant]

REACTIONS (10)
  - Unresponsive to stimuli [Not Recovered/Not Resolved]
  - Gait disturbance [Not Recovered/Not Resolved]
  - Hypoaesthesia [Unknown]
  - Pyrexia [Not Recovered/Not Resolved]
  - Skin injury [Unknown]
  - Muscle injury [Unknown]
  - Hepatic failure [Not Recovered/Not Resolved]
  - Renal failure [Not Recovered/Not Resolved]
  - Hepatic enzyme increased [Unknown]
  - Blood glucose increased [Not Recovered/Not Resolved]
